FAERS Safety Report 15169559 (Version 2)
Quarter: 2018Q3

REPORT INFORMATION
  Report Type: Report from Study
  Country: IT (occurrence: IT)
  Receive Date: 20180720
  Receipt Date: 20180726
  Transmission Date: 20181010
  Serious: Yes (Other)
  Sender: FDA-Public Use
  Company Number: IT-TEVA-2018-IT-928654

PATIENT
  Age: 82 Year
  Sex: Female

DRUGS (12)
  1. NORAPRIL 2,5 MG COMPRESSE [Concomitant]
     Indication: HYPERTENSION
     Route: 048
  2. NORVASC [Concomitant]
     Active Substance: AMLODIPINE BESYLATE
     Indication: CARDIAC DISORDER
     Route: 048
  3. ZYLLT 75 MG FILM?COATED TABLETS [Concomitant]
     Indication: THROMBOSIS PROPHYLAXIS
     Route: 048
  4. LASIX [Concomitant]
     Active Substance: FUROSEMIDE
     Indication: HYPERTENSION
     Route: 048
  5. LYRICA [Concomitant]
     Active Substance: PREGABALIN
     Indication: NEURALGIA
     Route: 048
  6. AZITHROMYCIN ANHYDROUS. [Suspect]
     Active Substance: AZITHROMYCIN ANHYDROUS
     Indication: LYMPHOEDEMA
     Dosage: 1 DOSAGE FORMS DAILY;
     Route: 048
  7. SIMVASTATIN. [Concomitant]
     Active Substance: SIMVASTATIN
     Indication: DYSLIPIDAEMIA
     Route: 048
  8. AMOXICILLIN W/CLAVULANIC ACID [Suspect]
     Active Substance: AMOXICILLIN\CLAVULANIC ACID
     Indication: LYMPHOEDEMA
     Dosage: 2 DOSAGE FORMS DAILY;
     Route: 048
  9. PANTORC 20 MG COMPRESSE GASTRORESISTENTI [Concomitant]
     Active Substance: PANTOPRAZOLE SODIUM
     Indication: GASTROOESOPHAGEAL REFLUX PROPHYLAXIS
     Route: 048
  10. CYMBALTA [Concomitant]
     Active Substance: DULOXETINE HYDROCHLORIDE
     Indication: DEPRESSION
     Route: 048
  11. GENTALYN BETA [Concomitant]
     Indication: LYMPHOEDEMA
     Route: 003
  12. LEXOTAN 2,5 MG/ML GOCCE ORALI SOLUZIONE [Concomitant]
     Active Substance: BROMAZEPAM
     Indication: ANXIETY
     Route: 048

REACTIONS (3)
  - Pruritus generalised [Recovering/Resolving]
  - Oedema peripheral [Recovering/Resolving]
  - Erythema [Recovering/Resolving]

NARRATIVE: CASE EVENT DATE: 20180622
